FAERS Safety Report 19039576 (Version 4)
Quarter: 2021Q2

REPORT INFORMATION
  Report Type: Report from Study
  Country: None (occurrence: CR)
  Receive Date: 20210322
  Receipt Date: 20210628
  Transmission Date: 20210717
  Serious: Yes (Hospitalization, Other)
  Sender: FDA-Public Use
  Company Number: CR-ABBVIE-21K-039-3821193-00

PATIENT
  Age: 49 Year
  Sex: Male
  Weight: 102 kg

DRUGS (4)
  1. HUMIRA [Suspect]
     Active Substance: ADALIMUMAB
     Indication: ANKYLOSING SPONDYLITIS
     Route: 058
     Dates: start: 20140604, end: 20210218
  2. METHOTREXATE. [Concomitant]
     Active Substance: METHOTREXATE
     Indication: PRODUCT USED FOR UNKNOWN INDICATION
     Dates: end: 2020
  3. HUMIRA [Suspect]
     Active Substance: ADALIMUMAB
     Route: 058
     Dates: start: 2021
  4. COVID?19 VACCINE [Concomitant]
     Indication: COVID-19 IMMUNISATION
     Route: 030
     Dates: start: 20210531, end: 20210531

REACTIONS (15)
  - Knee arthroplasty [Recovering/Resolving]
  - Inflammation [Recovering/Resolving]
  - Gastrointestinal disorder [Recovering/Resolving]
  - Osteoarthritis [Recovering/Resolving]
  - COVID-19 [Recovered/Resolved]
  - Uveitis [Recovering/Resolving]
  - Back pain [Recovering/Resolving]
  - Hip surgery [Recovering/Resolving]
  - Tooth injury [Recovering/Resolving]
  - Onychomycosis [Recovering/Resolving]
  - Gastrointestinal inflammation [Recovering/Resolving]
  - Fall [Recovering/Resolving]
  - Red blood cell sedimentation rate increased [Recovering/Resolving]
  - Immune system disorder [Recovering/Resolving]
  - Neck pain [Recovering/Resolving]

NARRATIVE: CASE EVENT DATE: 2017
